FAERS Safety Report 13637005 (Version 1)
Quarter: 2017Q2

REPORT INFORMATION
  Report Type: Spontaneous
  Country: US (occurrence: US)
  Receive Date: 20170609
  Receipt Date: 20170609
  Transmission Date: 20170830
  Serious: No
  Sender: FDA-Public Use
  Company Number: US-DRREDDYS-USA/USA/17/0086928

PATIENT
  Age: 78 Year
  Sex: Female

DRUGS (1)
  1. FEXOFENADINE HCL [Suspect]
     Active Substance: FEXOFENADINE HYDROCHLORIDE
     Indication: PRURITUS
     Route: 048
     Dates: start: 20170201

REACTIONS (2)
  - Expired product administered [Unknown]
  - No adverse event [Unknown]

NARRATIVE: CASE EVENT DATE: 20170201
